FAERS Safety Report 11185022 (Version 1)
Quarter: 2015Q2

REPORT INFORMATION
  Report Type: Spontaneous
  Country: US (occurrence: US)
  Receive Date: 20150612
  Receipt Date: 20150612
  Transmission Date: 20150821
  Serious: No
  Sender: FDA-Public Use
  Company Number: US-DSJP-DSU-2014-108884

PATIENT
  Age: 70 Year
  Sex: Male

DRUGS (1)
  1. BENICAR [Suspect]
     Active Substance: OLMESARTAN MEDOXOMIL
     Indication: HYPERTENSION
     Dosage: 1/2 TABLET 20 MG, QD
     Route: 048

REACTIONS (4)
  - Drug prescribing error [Unknown]
  - Drug administration error [Unknown]
  - Cough [Unknown]
  - Influenza like illness [Unknown]
